FAERS Safety Report 18249986 (Version 4)
Quarter: 2020Q4

REPORT INFORMATION
  Report Type: Spontaneous
  Country: US (occurrence: US)
  Receive Date: 20200909
  Receipt Date: 20201118
  Transmission Date: 20210113
  Serious: No
  Sender: FDA-Public Use
  Company Number: US-PFIZER INC-2020348406

PATIENT
  Age: 80 Year
  Sex: Female

DRUGS (4)
  1. MEKTOVI [Suspect]
     Active Substance: BINIMETINIB
     Dosage: 30 MG, 2X/DAY
  2. MEKTOVI [Suspect]
     Active Substance: BINIMETINIB
     Indication: LIP NEOPLASM MALIGNANT STAGE UNSPECIFIED
     Dosage: 45 MG, 2X/DAY
     Dates: start: 20200811
  3. BRAFTOVI [Suspect]
     Active Substance: ENCORAFENIB
     Indication: LIP NEOPLASM MALIGNANT STAGE UNSPECIFIED
     Dosage: 450 MG, 1X/DAY
     Dates: start: 20200811
  4. BRAFTOVI [Suspect]
     Active Substance: ENCORAFENIB
     Dosage: 300 MG, 1X/DAY

REACTIONS (7)
  - Nausea [Unknown]
  - Fatigue [Unknown]
  - Arthralgia [Unknown]
  - Rash [Unknown]
  - Neoplasm progression [Unknown]
  - Bone disorder [Unknown]
  - Pyrexia [Unknown]
